FAERS Safety Report 6377496-1 (Version None)
Quarter: 2009Q3

REPORT INFORMATION
  Report Type: 
  Country: None (occurrence: None)
  Receive Date: 20090925
  Receipt Date: 20090916
  Transmission Date: 20100115
  Serious: Yes (Other)
  Sender: FDA-Public Use
  Company Number: US-PFIZER INC-2009269337

PATIENT
  Sex: Female
  Weight: 85 kg

DRUGS (6)
  1. CELECOXIB [Suspect]
     Indication: OSTEOARTHRITIS
     Dosage: 200 MG, 1X/DAY
     Route: 048
     Dates: start: 20090521, end: 20090914
  2. LIPITOR [Concomitant]
     Dosage: UNK
     Route: 048
     Dates: start: 20080501
  3. GLUCOPHAGE [Concomitant]
     Dosage: UNK
     Route: 048
     Dates: start: 20050101
  4. SYNTHROID [Concomitant]
     Dosage: UNK
     Route: 048
     Dates: start: 20040101
  5. HYTRIN [Concomitant]
     Dosage: UNK
     Route: 048
     Dates: start: 20040101
  6. LOTREL [Concomitant]
     Dosage: UNK
     Route: 048
     Dates: start: 20040101

REACTIONS (1)
  - ATRIAL FIBRILLATION [None]
